FAERS Safety Report 4867983-7 (Version None)
Quarter: 2005Q4

REPORT INFORMATION
  Report Type: 
  Country: None (occurrence: None)
  Receive Date: 20051229
  Receipt Date: 20051219
  Transmission Date: 20060501
  Serious: Yes (Hospitalization)
  Sender: FDA-Public Use
  Company Number: JP-JNJFOC-20051102281

PATIENT
  Sex: Male
  Weight: 50 kg

DRUGS (9)
  1. REMICADE [Suspect]
     Route: 042
  2. REMICADE [Suspect]
     Dosage: SECOND INFUSION ON UNKNOWN DATE
     Route: 042
  3. REMICADE [Suspect]
     Indication: CROHN'S DISEASE
     Route: 042
  4. IMURAN [Suspect]
     Indication: CROHN'S DISEASE
     Route: 048
  5. PREDONINE [Suspect]
     Indication: CROHN'S DISEASE
     Route: 048
  6. PENTASA [Concomitant]
     Indication: CROHN'S DISEASE
     Route: 065
  7. METRONIDAZOLE [Concomitant]
     Route: 048
  8. ELENTAL [Concomitant]
     Route: 048
  9. ELENTAL [Concomitant]
     Indication: CROHN'S DISEASE
     Dosage: DOSAGE: 900 KCAL
     Route: 048

REACTIONS (3)
  - FUNGAL INFECTION [None]
  - SEPSIS [None]
  - SMALL INTESTINAL STENOSIS [None]
